FAERS Safety Report 4405186-0 (Version None)
Quarter: 2004Q3

REPORT INFORMATION
  Report Type: 
  Country: None (occurrence: None)
  Receive Date: 20040722
  Receipt Date: 20040722
  Transmission Date: 20050211
  Serious: Yes (Hospitalization)
  Sender: FDA-Public Use
  Company Number: None

PATIENT
  Age: 50 Year
  Sex: Female
  Weight: 97 kg

DRUGS (2)
  1. MORPHINE [Suspect]
     Indication: PAIN
     Dosage: 30 MG Q6 H PRN 2 DOSES
     Dates: start: 20040720
  2. MORPHINE [Suspect]
     Indication: PAIN
     Dosage: 30 MG Q6 H PRN 2 DOSES
     Dates: start: 20040721

REACTIONS (4)
  - HYPOGLYCAEMIA [None]
  - HYPOKALAEMIA [None]
  - HYPOTENSION [None]
  - RESPIRATORY DISTRESS [None]
